FAERS Safety Report 8392829-2 (Version None)
Quarter: 2012Q2

REPORT INFORMATION
  Report Type: 
  Country: None (occurrence: None)
  Receive Date: 20120529
  Receipt Date: 20120514
  Transmission Date: 20120825
  Serious: No
  Sender: FDA-Public Use
  Company Number: US-ASTRAZENECA-2011SE31578

PATIENT
  Age: 64 Year
  Sex: Female

DRUGS (1)
  1. NEXIUM [Suspect]
     Route: 048

REACTIONS (8)
  - CARPAL TUNNEL SYNDROME [None]
  - NASAL CONGESTION [None]
  - ARTHRITIS [None]
  - MIDDLE INSOMNIA [None]
  - GASTROOESOPHAGEAL REFLUX DISEASE [None]
  - THROAT IRRITATION [None]
  - NASOPHARYNGITIS [None]
  - INTENTIONAL DRUG MISUSE [None]
